FAERS Safety Report 9752714 (Version 1)
Quarter: 2013Q4

REPORT INFORMATION
  Report Type: Spontaneous
  Country: US (occurrence: None)
  Receive Date: 20131212
  Receipt Date: 20131212
  Transmission Date: 20140711
  Serious: Yes (Life-Threatening)
  Sender: FDA-Public Use
  Company Number: None

PATIENT
  Age: 63 Year
  Sex: 0
  Weight: 43.09 kg

DRUGS (8)
  1. TRAZODONE [Suspect]
     Indication: INSOMNIA
     Route: 048
     Dates: start: 20131122, end: 20131123
  2. PROTONIX [Concomitant]
  3. PREMARIN [Concomitant]
  4. WELLBUTRIN [Concomitant]
  5. TRAMADOL [Concomitant]
  6. ODANSETRON [Concomitant]
  7. MIRALAX [Concomitant]
  8. MULTI-VITAMIN(OTC) [Concomitant]

REACTIONS (1)
  - Pain in jaw [None]
